FAERS Safety Report 8827764 (Version 2)
Quarter: 2012Q4

REPORT INFORMATION
  Report Type: 
  Country: US (occurrence: US)
  Receive Date: 20121008
  Receipt Date: 20121109
  Transmission Date: 20130627
  Serious: No
  Sender: FDA-Public Use
  Company Number: US-PFIZER INC-2012247822

PATIENT
  Age: 37 Year
  Sex: Female
  Weight: 68.03 kg

DRUGS (4)
  1. LYRICA [Suspect]
     Indication: FIBROMYALGIA
     Dosage: 50 mg 1 Cap TID
     Route: 048
     Dates: start: 20110630
  2. EFFEXOR [Concomitant]
     Indication: FIBROMYALGIA
     Dosage: UNK
     Dates: end: 20110630
  3. CYMBALTA [Concomitant]
     Indication: OSTEOARTHRITIS
     Dosage: 60 mg, daily
  4. TRAMADOL [Concomitant]
     Indication: PAIN
     Dosage: 50 mg, as needed (every six hours)

REACTIONS (1)
  - Nasopharyngitis [Recovering/Resolving]
